FAERS Safety Report 5158743-0 (Version None)
Quarter: 2006Q4

REPORT INFORMATION
  Report Type: 
  Country: None (occurrence: None)
  Receive Date: 20061128
  Receipt Date: 20050913
  Transmission Date: 20070319
  Serious: Yes (Hospitalization)
  Sender: FDA-Public Use
  Company Number: US-ROCHE-417426

PATIENT
  Age: 41 Year
  Sex: Female

DRUGS (2)
  1. CAPECITABINE [Suspect]
     Indication: BREAST CANCER
     Dosage: UNREPORTED FREQUENCY.
     Route: 048
     Dates: start: 20050311
  2. IXABEPILONE [Suspect]
     Indication: BREAST CANCER
     Dosage: UNREPORTED FREQUENCY.
     Route: 042
     Dates: start: 20050311

REACTIONS (3)
  - BRONCHIECTASIS [None]
  - PNEUMONITIS [None]
  - SPUTUM ABNORMAL [None]
